FAERS Safety Report 24579196 (Version 2)
Quarter: 2024Q4

REPORT INFORMATION
  Report Type: Spontaneous
  Country: JP (occurrence: JP)
  Receive Date: 20241105
  Receipt Date: 20241220
  Transmission Date: 20250115
  Serious: Yes (Other)
  Sender: ROCHE
  Company Number: JP-CHUGAI-2024037460

PATIENT
  Age: 77 Year
  Sex: Male
  Weight: 74 kg

DRUGS (1)
  1. VABYSMO [Suspect]
     Active Substance: FARICIMAB-SVOA
     Indication: Retinal vein occlusion
     Dosage: 0.05 MILLILITER,LEFT EYE
     Route: 050
     Dates: start: 20240917, end: 20240917

REACTIONS (2)
  - Retinal haemorrhage [Unknown]
  - Retinal aneurysm [Unknown]

NARRATIVE: CASE EVENT DATE: 20241009
